APPROVED DRUG PRODUCT: TRICOR
Active Ingredient: FENOFIBRATE
Strength: 160MG **Federal Register determination that product was not discontinued or withdrawn for safety or effectiveness reasons**
Dosage Form/Route: TABLET;ORAL
Application: N021203 | Product #003
Applicant: ABBVIE INC
Approved: Sep 4, 2001 | RLD: Yes | RS: No | Type: DISCN